FAERS Safety Report 5353911-7 (Version None)
Quarter: 2007Q2

REPORT INFORMATION
  Report Type: 
  Country: None (occurrence: None)
  Receive Date: 20070521
  Receipt Date: 20070123
  Transmission Date: 20071010
  Serious: No
  Sender: FDA-Public Use
  Company Number: WAES 0701USA04107

PATIENT
  Age: 39 Year
  Sex: Female

DRUGS (5)
  1. JANUVIA [Suspect]
     Indication: DIABETES MELLITUS
     Dosage: 100 MG/DAILY/PO
     Route: 048
     Dates: start: 20061223
  2. GLUCOPHAGE [Concomitant]
  3. LIPITOR [Concomitant]
  4. GLIMEPIRIDE [Concomitant]
  5. LISINOPRIL [Concomitant]

REACTIONS (2)
  - ABNORMAL SENSATION IN EYE [None]
  - HYPOAESTHESIA EYE [None]
